FAERS Safety Report 6681265-2 (Version None)
Quarter: 2010Q2

REPORT INFORMATION
  Report Type: 
  Country: None (occurrence: None)
  Receive Date: 20100414
  Receipt Date: 20100411
  Transmission Date: 20101027
  Serious: Yes (Death)
  Sender: FDA-Public Use
  Company Number: GR-ROCHE-696574

PATIENT
  Age: 60 Year
  Sex: Female

DRUGS (2)
  1. MIRCERA [Suspect]
     Route: 065
  2. NEORECORMON [Suspect]
     Route: 065

REACTIONS (1)
  - APLASIA PURE RED CELL [None]
